FAERS Safety Report 4353910-8 (Version None)
Quarter: 2004Q2

REPORT INFORMATION
  Report Type: 
  Country: None (occurrence: None)
  Receive Date: 20040430
  Receipt Date: 20040420
  Transmission Date: 20050107
  Serious: Yes (Life-Threatening, Hospitalization, Other)
  Sender: FDA-Public Use
  Company Number: GBWYE660724MAR04

PATIENT
  Age: 69 Year
  Sex: Female

DRUGS (6)
  1. EFFEXOR XR [Suspect]
     Indication: DEPRESSION
     Dosage: 75 MG 1X PER 1 DAY
     Route: 048
     Dates: start: 20020302, end: 20020310
  2. SERTRALINE HCL [Suspect]
     Indication: DEPRESSION
     Dosage: 50 MG 1X PER 1 DAY
     Route: 048
     Dates: start: 20020222, end: 20020301
  3. ATORVASTATIN (ATORVASTATIN) [Concomitant]
  4. TIBOLONE (TIBOLONE) [Concomitant]
  5. ASPIRIN [Concomitant]
  6. AMITRIPTYLINE HCL [Concomitant]

REACTIONS (4)
  - CONDITION AGGRAVATED [None]
  - DEPRESSION [None]
  - GRAND MAL CONVULSION [None]
  - HYPONATRAEMIA [None]
